FAERS Safety Report 6213847-6 (Version None)
Quarter: 2009Q2

REPORT INFORMATION
  Report Type: 
  Country: None (occurrence: None)
  Receive Date: 20090601
  Receipt Date: 20090601
  Transmission Date: 20091009
  Serious: Yes (Other)
  Sender: FDA-Public Use
  Company Number: None

PATIENT
  Age: 49 Year
  Sex: Female
  Weight: 63.5036 kg

DRUGS (1)
  1. POLYETHYLENE GLYCOL 3350 [Suspect]
     Indication: CONSTIPATION
     Dosage: 17 GRAMS W/ 8 OZ FLUID DAILY PO
     Route: 048
     Dates: start: 20090505, end: 20090511

REACTIONS (5)
  - ABDOMINAL PAIN [None]
  - ABDOMINAL RIGIDITY [None]
  - INFREQUENT BOWEL MOVEMENTS [None]
  - NAUSEA [None]
  - PAIN OF SKIN [None]
